FAERS Safety Report 25592232 (Version 1)
Quarter: 2025Q3

REPORT INFORMATION
  Report Type: Spontaneous
  Country: US (occurrence: US)
  Receive Date: 20250722
  Receipt Date: 20250722
  Transmission Date: 20251021
  Serious: Yes (Hospitalization, Other)
  Sender: ALEMBIC
  Company Number: US-ALEMBIC PHARMACUETICALS LIMITED-2025SCAL000845

PATIENT

DRUGS (3)
  1. SOLIFENACIN SUCCINATE [Suspect]
     Active Substance: SOLIFENACIN SUCCINATE
     Indication: Product used for unknown indication
     Route: 065
  2. AMLODIPINE [Suspect]
     Active Substance: AMLODIPINE BESYLATE
     Indication: Product used for unknown indication
     Route: 065
  3. HYDROXYZINE [Suspect]
     Active Substance: HYDROXYZINE HYDROCHLORIDE
     Indication: Product used for unknown indication
     Route: 065

REACTIONS (9)
  - Cardiac failure [Recovering/Resolving]
  - Cardiac dysfunction [Recovering/Resolving]
  - Toxicity to various agents [Recovering/Resolving]
  - Oliguria [Recovering/Resolving]
  - Hyperglycaemia [Recovering/Resolving]
  - Blood lactic acid increased [Recovering/Resolving]
  - Hypotension [Recovering/Resolving]
  - Overdose [Recovering/Resolving]
  - Somnolence [Recovering/Resolving]
